FAERS Safety Report 14248897 (Version 3)
Quarter: 2017Q4

REPORT INFORMATION
  Report Type: Spontaneous
  Country: BE (occurrence: BE)
  Receive Date: 20171204
  Receipt Date: 20171222
  Transmission Date: 20180321
  Serious: Yes (Other)
  Sender: FDA-Public Use
  Company Number: BE-VERTEX PHARMACEUTICALS-2017-006609

PATIENT
  Age: 24 Year
  Sex: Male

DRUGS (13)
  1. ADEK [Concomitant]
  2. ATROVENT [Concomitant]
     Active Substance: IPRATROPIUM BROMIDE
     Dosage: 20 X 0.5 MG/2ML 1 APPLICATION 1 X/DAY
     Route: 055
  3. NOVORAPID [Concomitant]
     Active Substance: INSULIN ASPART
     Dosage: 5 X 3 ML 100 U/ML 12 U 1 X/DAY, BETWEEN 12 AND 18 UNITS DEPENDING ON GLYCAEMIA
  4. LANTUS [Concomitant]
     Active Substance: INSULIN GLARGINE
     Dosage: 5 X 3ML 100 U/ML 30 U 1 X/DAY
     Route: 058
  5. CREON [Concomitant]
     Active Substance: PANCRELIPASE AMYLASE\PANCRELIPASE LIPASE\PANCRELIPASE PROTEASE
     Dosage: 1 CAPSULE 1 X/DAY
  6. PULMOZYME [Concomitant]
     Active Substance: DORNASE ALFA
     Dosage: 30 X 2.5 MG/2.5 ML 1 VIAL 1 X/DAY
  7. OMEPRAZOLE. [Concomitant]
     Active Substance: OMEPRAZOLE
     Dosage: 56 X 40 MG 1 CAPSULE 1 X/DAY
  8. CALCIUM CARBONATE. [Concomitant]
     Active Substance: CALCIUM CARBONATE
     Dosage: 1 G/CAPSULE
  9. COLISTINEB [Concomitant]
     Dosage: 10 X 2 MILLION IU POWDER 1 ML 2 X/DAY
  10. NEBUSAL [Concomitant]
  11. ORKAMBI [Suspect]
     Active Substance: IVACAFTOR\LUMACAFTOR
     Indication: CYSTIC FIBROSIS
     Dosage: UNK
     Route: 048
     Dates: start: 20170524
  12. AZITHROMYCIN ANHYDROUS. [Concomitant]
     Active Substance: AZITHROMYCIN ANHYDROUS
     Dosage: 1 TABLET 3 X /WEEK
  13. D-CURE [Concomitant]
     Active Substance: CHOLECALCIFEROL
     Dosage: 12 X 25,000 IU/1 ML 1 VIAL 1 X/DAY
     Route: 048

REACTIONS (2)
  - Coma [Recovered/Resolved]
  - Hyperammonaemic encephalopathy [Recovered/Resolved]

NARRATIVE: CASE EVENT DATE: 201705
